FAERS Safety Report 7414689-6 (Version None)
Quarter: 2011Q2

REPORT INFORMATION
  Report Type: 
  Country: None (occurrence: None)
  Receive Date: 20110414
  Receipt Date: 20070306
  Transmission Date: 20111010
  Serious: Yes (Hospitalization, Other)
  Sender: FDA-Public Use
  Company Number: TN-BAYER-200710316BWH

PATIENT
  Age: 62 Year
  Sex: Female
  Weight: 111 kg

DRUGS (31)
  1. FUROSEMIDE [Concomitant]
     Indication: FLUID RETENTION
     Dosage: 80 MG, BID
     Route: 048
     Dates: start: 19980101
  2. ACETYLSALICYLIC ACID SRT [Concomitant]
     Dosage: 81 MG, QD
     Route: 048
  3. BACTROBAN [Concomitant]
     Indication: PREOPERATIVE CARE
     Dosage: EACH NOSTRIL AT BEDTIME
     Route: 045
     Dates: start: 20000209
  4. DECADRON [Concomitant]
     Dosage: 10 MG, UNK
     Route: 042
     Dates: start: 20050206
  5. COMBIVENT [Concomitant]
     Dosage: 2 PUFF(S), Q6H, PRN
     Dates: start: 20050207
  6. CEFAZOLIN [Concomitant]
     Dosage: 2 G, UNK
     Route: 042
  7. NITROGLYCERIN [Concomitant]
     Dosage: 0.1
     Route: 042
     Dates: start: 20050210, end: 20050210
  8. INSULIN [Concomitant]
     Dosage: UNK
     Route: 042
     Dates: start: 20050210
  9. PLASMALYTE 56 IN 5% DEXTROSE [Concomitant]
     Dosage: UNK
     Dates: start: 20050210, end: 20050210
  10. TRASYLOL [Suspect]
     Dosage: 50CC PER HOUR
     Dates: start: 20050210, end: 20050210
  11. NATRECOR [Concomitant]
     Dosage: UNK
     Route: 042
     Dates: start: 20050210
  12. FUROSEMIDE [Concomitant]
     Indication: PULMONARY OEDEMA
  13. AMIODARONE [Concomitant]
     Dosage: 400 MG, Q6H
     Route: 048
     Dates: start: 20050207
  14. DEMADEX [Concomitant]
     Dosage: 80 MG, BID
     Route: 048
  15. ZAROXOLYN [Concomitant]
     Indication: HYPERTENSION
     Dosage: 10 MG, QD
     Route: 048
     Dates: start: 20000101
  16. ALBUTEROL [Concomitant]
     Dosage: 2 PUFF(S), QID
  17. NATRECOR [Concomitant]
     Indication: PULMONARY OEDEMA
     Dosage: 0.01MCG/KILOGRAM/HR
     Route: 042
     Dates: start: 20050206, end: 20050216
  18. MANNITOL [Concomitant]
     Dosage: UNK
     Dates: start: 20050210, end: 20050210
  19. TRASYLOL [Suspect]
     Indication: MITRAL VALVE REPLACEMENT
     Dosage: 200CC
     Route: 042
     Dates: start: 20050210, end: 20050210
  20. NAPROXEN [Concomitant]
     Indication: ARTHRITIS
  21. ADVAIR HFA [Concomitant]
     Dosage: 250MCG ONE PUFF TWICE DAILY
  22. POTASSIUM CHLORIDE [Concomitant]
     Dosage: 40 MEQ, UNK
     Route: 048
     Dates: start: 20050209
  23. XOPENEX [Concomitant]
     Dosage: .63MG/3ML, EVERY 8 HRS
     Dates: start: 20050206
  24. HEPARIN [Concomitant]
     Dosage: 100 MG, PUMP PRIME
     Route: 042
     Dates: start: 20050210, end: 20050210
  25. HESPAN IN EXCEL PLASTIC CONTAINER [Concomitant]
     Dosage: UNK
     Dates: start: 20050210, end: 20050210
  26. HEPARIN [Concomitant]
     Dosage: 110 MG CARDIOPULMONARY BYPAS
     Route: 042
     Dates: start: 20050210, end: 20050210
  27. ZAROXOLYN [Concomitant]
     Dosage: 5 MG QD
  28. HEPARIN [Concomitant]
     Dosage: 440 MG, UNK
     Route: 042
     Dates: start: 20050210, end: 20050210
  29. PROTAMINE SULFATE [Concomitant]
     Dosage: 40 MG, UNK
     Route: 042
     Dates: start: 20050210, end: 20050210
  30. CARDIOPLEGIA [Concomitant]
     Dosage: UNK
     Dates: start: 20050210, end: 20050210
  31. ALBUMIN (HUMAN) [Concomitant]
     Dosage: 250 ML, UNK
     Dates: start: 20050210

REACTIONS (8)
  - FEAR [None]
  - DEPRESSION [None]
  - ANXIETY [None]
  - INJURY [None]
  - RENAL FAILURE [None]
  - UNEVALUABLE EVENT [None]
  - PAIN [None]
  - ANHEDONIA [None]
